FAERS Safety Report 7993915-9 (Version None)
Quarter: 2011Q4

REPORT INFORMATION
  Report Type: 
  Country: None (occurrence: None)
  Receive Date: 20111215
  Receipt Date: 20111130
  Transmission Date: 20120403
  Serious: Yes (Hospitalization, Other)
  Sender: FDA-Public Use
  Company Number: NSR_00322_2011

PATIENT
  Age: 36 Year
  Sex: Female

DRUGS (7)
  1. IBUPROFEN [Suspect]
     Indication: MYALGIA
     Dosage: (50 MG 1X, ONE DOSE, DRUG CHALLENGE)
     Dates: start: 20090401
  2. IBUPROFEN [Suspect]
     Indication: EAR PAIN
     Dosage: (50 MG 1X, ONE DOSE, DRUG CHALLENGE)
     Dates: start: 20090401
  3. IBUPROFEN [Suspect]
     Indication: MYALGIA
     Dosage: (50 MG 1X, ONE DOSE, DRUG CHALLENGE)
     Dates: start: 20100301
  4. IBUPROFEN [Suspect]
     Indication: EAR PAIN
     Dosage: (50 MG 1X, ONE DOSE, DRUG CHALLENGE)
     Dates: start: 20100301
  5. IBUPROFEN [Suspect]
     Indication: MYALGIA
     Dosage: (50 MG 1X, ONE DOSE, DRUG CHALLENGE)
     Dates: start: 20100801, end: 20100801
  6. IBUPROFEN [Suspect]
     Indication: EAR PAIN
     Dosage: (50 MG 1X, ONE DOSE, DRUG CHALLENGE)
     Dates: start: 20100801, end: 20100801
  7. AMOXICILLIN [Concomitant]

REACTIONS (3)
  - MENINGITIS ASEPTIC [None]
  - DRUG HYPERSENSITIVITY [None]
  - MYALGIA [None]
